FAERS Safety Report 5868086-5 (Version None)
Quarter: 2008Q3

REPORT INFORMATION
  Report Type: 
  Country: None (occurrence: None)
  Receive Date: 20080902
  Receipt Date: 20080407
  Transmission Date: 20090109
  Serious: No
  Sender: FDA-Public Use
  Company Number: US-ABBOTT-08P-163-0445883-00

PATIENT
  Sex: Female
  Weight: 86.26 kg

DRUGS (2)
  1. DEPAKOTE ER [Suspect]
     Indication: ANXIETY
     Dosage: 2 TABLETS EVERY MORNING AND 4 TABLETS EVERYDAY AT BED TIME
     Route: 048
     Dates: start: 20040101
  2. DEPAKOTE ER [Suspect]
     Indication: CONVULSION

REACTIONS (5)
  - DRY EYE [None]
  - DYSGEUSIA [None]
  - ERYTHEMA [None]
  - LIVER DISORDER [None]
  - PHOTOPHOBIA [None]
